FAERS Safety Report 16137857 (Version 2)
Quarter: 2019Q4

REPORT INFORMATION
  Report Type: Spontaneous
  Country: JP (occurrence: JP)
  Receive Date: 20190401
  Receipt Date: 20191125
  Transmission Date: 20200122
  Serious: Yes (Other)
  Sender: FDA-Public Use
  Company Number: JP-GLAXOSMITHKLINE-JP2019JPN054112

PATIENT
  Age: 77 Year
  Sex: Male
  Weight: 47 kg

DRUGS (1)
  1. ZOVIRAX [Suspect]
     Active Substance: ACYCLOVIR
     Indication: HERPES ZOSTER
     Dosage: 500 MG, 1D
     Route: 041

REACTIONS (7)
  - Toxic encephalopathy [Unknown]
  - Abnormal behaviour [Unknown]
  - Hallucination, visual [Unknown]
  - Prescribed overdose [Unknown]
  - Tooth loss [Unknown]
  - Renal impairment [Unknown]
  - Osteonecrosis of jaw [Unknown]
